FAERS Safety Report 8225913-4 (Version None)
Quarter: 2012Q1

REPORT INFORMATION
  Report Type: 
  Country: None (occurrence: None)
  Receive Date: 20120321
  Receipt Date: 20120312
  Transmission Date: 20120608
  Serious: Yes (Other)
  Sender: FDA-Public Use
  Company Number: US-ROCHE-1043530

PATIENT
  Age: 58 Year
  Sex: Female

DRUGS (6)
  1. ATENOLOL [Concomitant]
  2. ALLEGRA [Concomitant]
  3. NASONEX [Concomitant]
  4. HYDROCHLOROTHIAZIDE [Concomitant]
  5. XOLAIR [Suspect]
  6. XOLAIR [Suspect]
     Indication: URTICARIA
     Route: 058

REACTIONS (11)
  - MENTAL STATUS CHANGES [None]
  - ANAPHYLACTIC REACTION [None]
  - URTICARIA [None]
  - AGGRESSION [None]
  - HYPERTENSION [None]
  - TUNNEL VISION [None]
  - FEELING ABNORMAL [None]
  - PRURITUS [None]
  - ERYTHEMA [None]
  - SLOW RESPONSE TO STIMULI [None]
  - SCRATCH [None]
